FAERS Safety Report 13561138 (Version 1)
Quarter: 2017Q2

REPORT INFORMATION
  Report Type: Spontaneous
  Country: CA (occurrence: CA)
  Receive Date: 20170518
  Receipt Date: 20170518
  Transmission Date: 20170830
  Serious: Yes (Death, Hospitalization, Other)
  Sender: FDA-Public Use
  Company Number: CA-MYLANLABS-2017M1030050

PATIENT

DRUGS (2)
  1. AZACITIDINE. [Suspect]
     Active Substance: AZACITIDINE
     Indication: ACUTE MYELOID LEUKAEMIA
     Dosage: 75MG/M2 FOR 7 DAYS
     Route: 065
  2. NIVOLUMAB [Suspect]
     Active Substance: NIVOLUMAB
     Indication: HODGKIN^S DISEASE
     Dosage: RECEIVED NINTH CYCLE ON FIRST DAY OF SECOND AZACITIDINE CYCLE
     Route: 065
     Dates: start: 201508

REACTIONS (2)
  - Acute myeloid leukaemia [Fatal]
  - Myositis [Recovered/Resolved]
